FAERS Safety Report 6002251-1 (Version None)
Quarter: 2008Q4

REPORT INFORMATION
  Report Type: 
  Country: None (occurrence: None)
  Receive Date: 20081215
  Receipt Date: 20071206
  Transmission Date: 20090506
  Serious: No
  Sender: FDA-Public Use
  Company Number: US-AMGEN-KDL253200

PATIENT
  Sex: Male
  Weight: 76.3 kg

DRUGS (2)
  1. ENBREL [Suspect]
     Indication: PSORIASIS
     Route: 058
     Dates: start: 20070910, end: 20071114
  2. ALLOPURINOL [Concomitant]

REACTIONS (2)
  - INFECTED SKIN ULCER [None]
  - SKIN BURNING SENSATION [None]
